FAERS Safety Report 8840896 (Version 2)
Quarter: 2012Q4

REPORT INFORMATION
  Report Type: Report from Study
  Country: JP (occurrence: JP)
  Receive Date: 20121015
  Receipt Date: 20121024
  Transmission Date: 20130627
  Serious: Yes (Hospitalization)
  Sender: FDA-Public Use
  Company Number: JP-EISAI INC-E3810-05985-CLI-JP

PATIENT
  Age: 91 Year
  Sex: Female
  Weight: 59 kg

DRUGS (12)
  1. E3810 (RABEPRAZOLE) [Suspect]
     Indication: PROPHYLAXIS AGAINST GASTROINTESTINAL ULCER
     Dosage: UNKNOWN
     Route: 048
     Dates: start: 20120308
  2. ZYLORIC [Concomitant]
     Indication: HYPERURICAEMIA
     Route: 048
  3. MAINTATE [Concomitant]
     Indication: ANGINA PECTORIS
     Route: 048
     Dates: start: 20060614
  4. ITOROL [Concomitant]
     Indication: ANGINA PECTORIS
     Route: 048
  5. CIBENOL [Concomitant]
     Indication: EXTRASYSTOLES
     Route: 048
     Dates: start: 20040603
  6. DIOVAN [Concomitant]
     Indication: HYPERTENSION
     Route: 048
     Dates: start: 20090625
  7. LIPO-OFF [Concomitant]
     Indication: HYPERLIPIDAEMIA
     Route: 048
     Dates: start: 20100318
  8. CONSTAN [Concomitant]
     Indication: INSOMNIA
     Route: 048
     Dates: start: 20110317
  9. PLAVIX [Concomitant]
     Indication: THROMBOSIS PROPHYLAXIS
     Route: 048
     Dates: start: 20060607
  10. NEUROTROPIN [Concomitant]
     Indication: GONARTHROSIS
     Route: 048
     Dates: start: 20120621
  11. INTEBAN [Concomitant]
     Indication: GONARTHROSIS
     Dates: start: 20120726
  12. METGLUCO [Concomitant]
     Indication: DIABETES MELLITUS
     Dates: start: 20120913

REACTIONS (1)
  - Feeling abnormal [Recovered/Resolved]
